FAERS Safety Report 7495614-9 (Version None)
Quarter: 2011Q2

REPORT INFORMATION
  Report Type: 
  Country: None (occurrence: None)
  Receive Date: 20110523
  Receipt Date: 20110510
  Transmission Date: 20111010
  Serious: Yes (Other)
  Sender: FDA-Public Use
  Company Number: SE-JNJFOC-20110505071

PATIENT
  Age: 45 Year
  Sex: Female

DRUGS (4)
  1. RISPERDAL CONSTA [Suspect]
     Indication: SCHIZOPHRENIA
     Route: 030
  2. FLUOXETINE HCL [Concomitant]
     Route: 065
  3. ZOPICLONE [Concomitant]
     Route: 065
  4. INVEGA [Suspect]
     Indication: SCHIZOPHRENIA
     Route: 048

REACTIONS (2)
  - OVERDOSE [None]
  - HALLUCINATION, AUDITORY [None]
